FAERS Safety Report 8785710 (Version 1)
Quarter: 2012Q4

REPORT INFORMATION
  Report Type: Report from Study
  Country: CA (occurrence: CA)
  Receive Date: 20120914
  Receipt Date: 20120914
  Transmission Date: 20130627
  Serious: Yes (Other)
  Sender: FDA-Public Use
  Company Number: CA-JNJFOC-20120902913

PATIENT
  Age: 60 Year
  Sex: Male
  Weight: 88 kg

DRUGS (12)
  1. REMICADE [Suspect]
     Indication: COLITIS ULCERATIVE
     Route: 042
     Dates: start: 201010
  2. PREDNISONE [Concomitant]
     Route: 065
  3. PLAVIX [Concomitant]
     Route: 065
  4. ASACOL [Concomitant]
     Route: 065
  5. RAMIPRIL [Concomitant]
     Route: 065
  6. ASA [Concomitant]
     Route: 065
  7. AMLODIPINE [Concomitant]
     Route: 065
  8. LAMISIL [Concomitant]
     Route: 061
  9. LAMISIL [Concomitant]
     Route: 048
  10. URISEC [Concomitant]
     Route: 065
  11. BUSCOPAN [Concomitant]
     Route: 065
  12. ATORVASTATIN [Concomitant]
     Route: 065

REACTIONS (1)
  - Polyp [Unknown]
